FAERS Safety Report 25206313 (Version 1)
Quarter: 2025Q2

REPORT INFORMATION
  Report Type: Spontaneous
  Country: NL (occurrence: NL)
  Receive Date: 20250417
  Receipt Date: 20250417
  Transmission Date: 20250716
  Serious: Yes (Other)
  Sender: GLENMARK
  Company Number: NL-GLENMARK PHARMACEUTICALS-2025GMK099493

PATIENT
  Age: 66 Year
  Sex: Male

DRUGS (8)
  1. MOMETASONE FUROATE [Suspect]
     Active Substance: MOMETASONE FUROATE
     Indication: Product used for unknown indication
     Route: 065
  2. MOMETASONE FUROATE [Suspect]
     Active Substance: MOMETASONE FUROATE
     Route: 065
  3. MOMETASONE FUROATE [Suspect]
     Active Substance: MOMETASONE FUROATE
     Indication: Eczema
     Route: 065
  4. MOMETASONE FUROATE [Suspect]
     Active Substance: MOMETASONE FUROATE
     Route: 065
  5. TRIAMCINOLONE [Suspect]
     Active Substance: TRIAMCINOLONE
     Indication: Product used for unknown indication
     Route: 065
  6. DESOXIMETASONE [Suspect]
     Active Substance: DESOXIMETASONE
     Indication: Product used for unknown indication
     Route: 065
  7. CLOBETASONE BUTYRATE [Suspect]
     Active Substance: CLOBETASONE BUTYRATE
     Indication: Product used for unknown indication
     Route: 065
  8. PREDNISONE [Suspect]
     Active Substance: PREDNISONE
     Indication: Product used for unknown indication
     Route: 065

REACTIONS (10)
  - Libido decreased [Recovering/Resolving]
  - Haematoma [Recovering/Resolving]
  - Obesity [Recovering/Resolving]
  - Hypothyroidism [Recovering/Resolving]
  - Central obesity [Recovering/Resolving]
  - Oedema peripheral [Recovering/Resolving]
  - Mood swings [Recovering/Resolving]
  - Testosterone deficiency syndrome [Recovering/Resolving]
  - Cushing^s syndrome [Recovering/Resolving]
  - Skin striae [Recovering/Resolving]
